FAERS Safety Report 18666847 (Version 1)
Quarter: 2020Q4

REPORT INFORMATION
  Report Type: Spontaneous
  Country: JP (occurrence: JP)
  Receive Date: 20201227
  Receipt Date: 20201227
  Transmission Date: 20210114
  Serious: Yes (Hospitalization, Other)
  Sender: FDA-Public Use
  Company Number: JP-AMGEN-JPNSP2020210008

PATIENT
  Age: 85 Year
  Sex: Female

DRUGS (1)
  1. PRALIA [Suspect]
     Active Substance: DENOSUMAB
     Indication: BONE DENSITY DECREASED
     Dosage: UNK
     Route: 065
     Dates: start: 2017

REACTIONS (5)
  - Osteonecrosis of jaw [Not Recovered/Not Resolved]
  - Toothache [Not Recovered/Not Resolved]
  - Hypoaesthesia oral [Unknown]
  - Gingival bleeding [Not Recovered/Not Resolved]
  - Gingivitis [Not Recovered/Not Resolved]
